FAERS Safety Report 11828825 (Version 2)
Quarter: 2016Q1

REPORT INFORMATION
  Report Type: Spontaneous
  Country: IT (occurrence: IT)
  Receive Date: 20151211
  Receipt Date: 20160129
  Transmission Date: 20160525
  Serious: Yes (Hospitalization, Other)
  Sender: FDA-Public Use
  Company Number: IT-BRISTOL-MYERS SQUIBB COMPANY-BMS-2015-084839

PATIENT
  Age: 61 Year
  Sex: Male
  Weight: 66 kg

DRUGS (3)
  1. OXYCODON ACCORD [Concomitant]
     Indication: CANCER PAIN
     Dosage: 40 MG, UNK
     Route: 048
     Dates: start: 20150924, end: 20151015
  2. EPOETIN ALFA [Concomitant]
     Active Substance: ERYTHROPOIETIN
     Indication: ANAEMIA
     Dosage: 30000 DOSAGE UNITS. UNK [30000 IU/0.75 ML INJECTABLE SOLUTION]
     Route: 058
     Dates: start: 20150924, end: 20151015
  3. NIVOLUMAB BMS [Suspect]
     Active Substance: NIVOLUMAB
     Indication: LUNG ADENOCARCINOMA METASTATIC
     Dosage: 198 MG, QCYCLE
     Route: 042
     Dates: start: 20150924, end: 20151008

REACTIONS (5)
  - Malignant neoplasm progression [Unknown]
  - Heart sounds abnormal [Unknown]
  - Cardiac tamponade [Unknown]
  - Dyspnoea [Unknown]
  - Pleural effusion [Unknown]

NARRATIVE: CASE EVENT DATE: 20151015
